FAERS Safety Report 7134251-2 (Version None)
Quarter: 2010Q4

REPORT INFORMATION
  Report Type: 
  Country: None (occurrence: None)
  Receive Date: 20101117
  Receipt Date: 20101104
  Transmission Date: 20110411
  Serious: Yes (Other)
  Sender: FDA-Public Use
  Company Number: 2010S1000797

PATIENT
  Age: 7 Decade
  Sex: Female
  Weight: 65 kg

DRUGS (5)
  1. LIVALO [Suspect]
     Indication: HYPERCHOLESTEROLAEMIA
     Dosage: 1X;PO 2 MG; 1X;PO
     Route: 048
     Dates: start: 20040604, end: 20090302
  2. LIVALO [Suspect]
     Indication: HYPERCHOLESTEROLAEMIA
     Dosage: 1X;PO 2 MG; 1X;PO
     Route: 048
     Dates: start: 20090303
  3. PIOGLITAZONE HCL [Concomitant]
  4. AMARYL [Concomitant]
  5. GLUCOBAY [Concomitant]

REACTIONS (2)
  - BLOOD GLUCOSE INCREASED [None]
  - DRUG INEFFECTIVE [None]
